FAERS Safety Report 5143807-8 (Version None)
Quarter: 2006Q4

REPORT INFORMATION
  Report Type: 
  Country: None (occurrence: None)
  Receive Date: 20061106
  Receipt Date: 20061025
  Transmission Date: 20070319
  Serious: Yes (Other)
  Sender: FDA-Public Use
  Company Number: GB-JNJFOC-20061006210

PATIENT
  Age: 42 Year
  Sex: Female

DRUGS (4)
  1. DURAGESIC-100 [Suspect]
     Indication: BACK PAIN
     Route: 062
  2. TRAMADOL HCL [Concomitant]
     Route: 048
  3. CYCLIZINE [Concomitant]
     Indication: MALAISE
     Route: 048
  4. AMITRIPTYLINE HCL [Concomitant]
     Route: 048

REACTIONS (8)
  - AGITATION [None]
  - ASTHENIA [None]
  - DEVICE FAILURE [None]
  - GASTROINTESTINAL DISORDER [None]
  - MALAISE [None]
  - NASOPHARYNGITIS [None]
  - SOMNOLENCE [None]
  - TREMOR [None]
